FAERS Safety Report 9142633 (Version 2)
Quarter: 2013Q2

REPORT INFORMATION
  Report Type: Report from Study
  Country: JP (occurrence: JP)
  Receive Date: 20130306
  Receipt Date: 20130605
  Transmission Date: 20140414
  Serious: Yes (Hospitalization)
  Sender: FDA-Public Use
  Company Number: JP-SANOFI-AVENTIS-2013SA020078

PATIENT
  Age: 52 Year
  Sex: Male
  Weight: 70 kg

DRUGS (5)
  1. PLAVIX [Suspect]
     Indication: LACUNAR INFARCTION
     Route: 048
     Dates: start: 20120624
  2. TAKEPRON [Concomitant]
     Indication: PROPHYLAXIS
     Route: 048
     Dates: start: 20120624
  3. EUGLUCON [Concomitant]
     Indication: LACUNAR INFARCTION
     Route: 048
  4. GLACTIV [Concomitant]
     Indication: LACUNAR INFARCTION
     Route: 048
  5. AMLODIN [Concomitant]
     Indication: LACUNAR INFARCTION
     Route: 048

REACTIONS (2)
  - Cholecystitis [Recovering/Resolving]
  - Cerebral infarction [Recovering/Resolving]
